FAERS Safety Report 19503407 (Version 1)
Quarter: 2021Q3

REPORT INFORMATION
  Report Type: Spontaneous
  Country: US (occurrence: US)
  Receive Date: 20210707
  Receipt Date: 20210707
  Transmission Date: 20211014
  Serious: No
  Sender: FDA-Public Use
  Company Number: US-ROCHE-2704467

PATIENT
  Sex: Male
  Weight: 62.2 kg

DRUGS (14)
  1. ATORVASTATIN [Concomitant]
     Active Substance: ATORVASTATIN
     Dosage: TAKE 1 TABLETS EVERY DAY BY ORAL ROUTE
     Route: 048
  2. OMEPRAZOLE. [Concomitant]
     Active Substance: OMEPRAZOLE
     Dosage: TAKE 1 CAPSULES EVERY DAY BY ORAL ROUTE FOR 30 DAYS
     Route: 048
  3. METOPROLOL TARTRATE. [Concomitant]
     Active Substance: METOPROLOL TARTRATE
     Dosage: TAKE 1 TABLETS TWICE A DAY BY ORAL ROUTE
     Route: 048
  4. QUETIAPINE. [Concomitant]
     Active Substance: QUETIAPINE
     Dosage: TAKE 1 TABLETS 4 TIMES A DAY BY ORAL ROUTE
     Route: 048
  5. BUDESONIDE. [Concomitant]
     Active Substance: BUDESONIDE
     Dosage: INHALE 2 ML TWICE A DAY BY NEBULIZATION ROUTE
  6. CLOPIDOGREL [Concomitant]
     Active Substance: CLOPIDOGREL BISULFATE
     Dosage: TAKE 1 TABLETS EVERY DAY BY ORAL ROUTE
     Route: 048
  7. FLUOXETINE [Concomitant]
     Active Substance: FLUOXETINE HYDROCHLORIDE
     Dosage: TAKE 1 CAPSULES EVERY DAY BY ORAL ROUTE
     Route: 048
  8. PREDNISONE. [Concomitant]
     Active Substance: PREDNISONE
     Dosage: TAKE 1 TABLETS EVERY DAY BY ORAL ROUTE
     Route: 048
  9. XANAX [Concomitant]
     Active Substance: ALPRAZOLAM
     Dosage: TAKE 1 TABLETS 3 TIMES A DAY BY ORAL ROUTE.
     Route: 048
  10. ASPIRIN. [Concomitant]
     Active Substance: ASPIRIN
     Dosage: TAKE 1 TABLET EVERY DAY BY ORAL ROUTE
     Route: 048
  11. NOVOLIN R [Concomitant]
     Active Substance: INSULIN HUMAN
     Dosage: INJECT BY SUBCUTANEOUS ROUTE
     Route: 058
  12. TESSALON [Concomitant]
     Active Substance: BENZONATATE
     Dosage: TAKE 1 CAPSULES 3 TIMES A DAY BY ORAL ROUTE AS NEEDED.
     Route: 048
  13. CELLCEPT [Suspect]
     Active Substance: MYCOPHENOLATE MOFETIL\MYCOPHENOLATE MOFETIL HYDROCHLORIDE
     Indication: ANTI-CYCLIC CITRULLINATED PEPTIDE ANTIBODY POSITIVE
     Dosage: TAKE 2 TABLET TWICE A DAY BY ORAL ROUTE FOR 30 DAYS
     Route: 048
  14. CLONAZEPAM. [Concomitant]
     Active Substance: CLONAZEPAM
     Dosage: PLACE 1 TABLETS TWICE A DAY BY TRANSLINGUAL ROUTE
     Route: 048

REACTIONS (5)
  - Cough [Unknown]
  - Night sweats [Unknown]
  - Anxiety [Unknown]
  - Dry eye [Unknown]
  - Dyspnoea [Unknown]
